FAERS Safety Report 7890901-4 (Version None)
Quarter: 2011Q4

REPORT INFORMATION
  Report Type: 
  Country: None (occurrence: None)
  Receive Date: 20111103
  Receipt Date: 20110726
  Transmission Date: 20120403
  Serious: No
  Sender: FDA-Public Use
  Company Number: US-AMGEN-USASP2011038086

PATIENT
  Sex: Female

DRUGS (1)
  1. ENBREL [Suspect]
     Indication: RHEUMATOID ARTHRITIS
     Dosage: 50 MG, QWK
     Dates: start: 19990101, end: 20110701

REACTIONS (6)
  - INJECTION SITE REACTION [None]
  - RASH [None]
  - DERMATITIS ALLERGIC [None]
  - HEADACHE [None]
  - RHEUMATOID ARTHRITIS [None]
  - URTICARIA [None]
